FAERS Safety Report 13967604 (Version 1)
Quarter: 2017Q3

REPORT INFORMATION
  Report Type: Spontaneous
  Country: JP (occurrence: JP)
  Receive Date: 20170914
  Receipt Date: 20170914
  Transmission Date: 20171128
  Serious: No
  Sender: FDA-Public Use
  Company Number: JP-ELI_LILLY_AND_COMPANY-JP201709003924

PATIENT
  Age: 87 Year
  Sex: Male

DRUGS (4)
  1. AVOLVE [Concomitant]
     Active Substance: DUTASTERIDE
     Dosage: UNK
     Route: 048
     Dates: start: 201609
  2. ZALUTIA [Suspect]
     Active Substance: TADALAFIL
     Indication: PRODUCT USED FOR UNKNOWN INDICATION
     Dosage: UNK
     Route: 048
     Dates: start: 201609
  3. URIEF [Concomitant]
     Active Substance: SILODOSIN
     Dosage: UNK
     Dates: end: 201707
  4. BESACOLIN [Concomitant]
     Active Substance: BETHANECHOL CHLORIDE
     Indication: NEUROGENIC BLADDER

REACTIONS (2)
  - Hypoacusis [Unknown]
  - Visual acuity reduced [Unknown]
